FAERS Safety Report 23945564 (Version 1)
Quarter: 2024Q2

REPORT INFORMATION
  Report Type: Spontaneous
  Country: US (occurrence: US)
  Receive Date: 20240606
  Receipt Date: 20240606
  Transmission Date: 20240716
  Serious: Yes (Other)
  Sender: FDA-Public Use
  Company Number: US-MYLANLABS-2024M1050900

PATIENT
  Age: 67 Year
  Sex: Female

DRUGS (7)
  1. TACROLIMUS [Suspect]
     Active Substance: TACROLIMUS
     Indication: Lichen sclerosus
     Dosage: UNK, SEVERAL TIMES PER WEEK
     Route: 065
  2. TRIAMCINOLONE [Suspect]
     Active Substance: TRIAMCINOLONE
     Indication: Lichen sclerosus
     Dosage: UNK
     Route: 026
  3. HYDROXYCHLOROQUINE [Suspect]
     Active Substance: HYDROXYCHLOROQUINE
     Indication: Lichen sclerosus
     Dosage: 200 MILLIGRAM, BID
     Route: 048
  4. HYDROXYCHLOROQUINE [Suspect]
     Active Substance: HYDROXYCHLOROQUINE
     Dosage: 200 MILLIGRAM, QD
     Route: 048
  5. HALOBETASOL [Suspect]
     Active Substance: HALOBETASOL
     Indication: Lichen sclerosus
     Dosage: UNK UNK, BID
     Route: 061
  6. METHOTREXATE [Concomitant]
     Active Substance: METHOTREXATE
     Indication: Lichen sclerosus
     Dosage: UNK
     Route: 065
  7. FOLIC ACID [Concomitant]
     Active Substance: FOLIC ACID
     Indication: Lichen sclerosus
     Dosage: UNK
     Route: 065

REACTIONS (2)
  - Drug ineffective [Unknown]
  - Off label use [Unknown]
